FAERS Safety Report 24548165 (Version 1)
Quarter: 2024Q4

REPORT INFORMATION
  Report Type: Report from Study
  Country: US (occurrence: US)
  Receive Date: 20241025
  Receipt Date: 20241025
  Transmission Date: 20250115
  Serious: Yes (Other)
  Sender: ABBVIE
  Company Number: US-ABBVIE-5973190

PATIENT
  Sex: Female

DRUGS (2)
  1. SKYRIZI [Suspect]
     Active Substance: RISANKIZUMAB-RZAA
     Indication: Eczema
     Route: 058
     Dates: start: 20220101
  2. SKYRIZI [Suspect]
     Active Substance: RISANKIZUMAB-RZAA
     Indication: Rosacea

REACTIONS (6)
  - Tendon rupture [Unknown]
  - Fall [Unknown]
  - Osteopenia [Unknown]
  - Condition aggravated [Unknown]
  - Radius fracture [Unknown]
  - Back injury [Unknown]

NARRATIVE: CASE EVENT DATE: 20230101
